FAERS Safety Report 17639441 (Version 1)
Quarter: 2020Q2

REPORT INFORMATION
  Report Type: Spontaneous
  Country: US (occurrence: US)
  Receive Date: 20200407
  Receipt Date: 20200407
  Transmission Date: 20200713
  Serious: Yes (Death, Hospitalization, Other)
  Sender: FDA-Public Use
  Company Number: US-PFIZER INC-2020141123

PATIENT
  Age: 79 Year
  Sex: Female

DRUGS (5)
  1. SILDENAFIL CITRATE. [Suspect]
     Active Substance: SILDENAFIL CITRATE
     Indication: PULMONARY ARTERIAL HYPERTENSION
     Dosage: 10 MG, 3X/DAY
     Dates: start: 202003
  2. BOSENTAN. [Suspect]
     Active Substance: BOSENTAN
     Indication: PULMONARY ARTERIAL HYPERTENSION
     Dosage: 62.5 MG, 2X/DAY
     Dates: start: 202003
  3. REMODULIN [Suspect]
     Active Substance: TREPROSTINIL
     Indication: PULMONARY ARTERIAL HYPERTENSION
     Dosage: UNK
     Route: 042
     Dates: start: 20190829
  4. REMODULIN [Suspect]
     Active Substance: TREPROSTINIL
     Dosage: 0.041 UG/KG, UNK
     Route: 042
  5. REMODULIN [Suspect]
     Active Substance: TREPROSTINIL
     Dosage: 0.035 UG/KG, UNK
     Route: 042
     Dates: start: 202003

REACTIONS (3)
  - Chronic kidney disease [Fatal]
  - Pulmonary hypertension [Fatal]
  - Malaise [Unknown]
